FAERS Safety Report 18506238 (Version 1)
Quarter: 2020Q4

REPORT INFORMATION
  Report Type: Spontaneous
  Country: ES (occurrence: ES)
  Receive Date: 20201116
  Receipt Date: 20201116
  Transmission Date: 20210114
  Serious: Yes (Other)
  Sender: FDA-Public Use
  Company Number: NVSC2020ES299043

PATIENT
  Age: 16 Year
  Sex: Male

DRUGS (2)
  1. METHYLPHENIDATE. [Suspect]
     Active Substance: METHYLPHENIDATE
     Indication: PRODUCT USED FOR UNKNOWN INDICATION
     Dosage: 54 MG, QD (UNO AL DIA) (54 MG COMPRIMIDOS DE LIBERACION PROLONGADA EFG, 30 COMPRIMIDOS)
     Route: 048
     Dates: start: 20200929, end: 20201002
  2. CONCERTA [Concomitant]
     Active Substance: METHYLPHENIDATE HYDROCHLORIDE
     Indication: PRODUCT USED FOR UNKNOWN INDICATION
     Dosage: UNO AL DIA ( 18 MG COMPRIMIDOS DE LIBERACION PROLONGADA, 30 COMPRIMIDOS)
     Route: 048
     Dates: start: 20191001

REACTIONS (1)
  - Extrapyramidal disorder [Recovered/Resolved]

NARRATIVE: CASE EVENT DATE: 20201001
